FAERS Safety Report 5960316-4 (Version None)
Quarter: 2008Q4

REPORT INFORMATION
  Report Type: 
  Country: None (occurrence: None)
  Receive Date: 20081120
  Receipt Date: 20081117
  Transmission Date: 20090506
  Serious: Yes (Hospitalization)
  Sender: FDA-Public Use
  Company Number: DE-BRISTOL-MYERS SQUIBB COMPANY-14213870

PATIENT
  Age: 52 Year
  Sex: Male
  Weight: 75 kg

DRUGS (6)
  1. CETUXIMAB [Suspect]
     Indication: NON-SMALL CELL LUNG CANCER
     Dosage: 2 MG/ML
     Route: 042
     Dates: start: 20080513, end: 20080520
  2. CARBOPLATIN [Suspect]
     Indication: NON-SMALL CELL LUNG CANCER
     Route: 042
     Dates: start: 20080513, end: 20080513
  3. GEMCITABINE HCL [Suspect]
     Indication: NON-SMALL CELL LUNG CANCER
     Route: 042
     Dates: start: 20080513, end: 20080520
  4. TRAMADOL HCL [Concomitant]
     Indication: PAIN
     Dosage: 30 GTT
     Route: 048
  5. NOSCAPINE [Concomitant]
     Indication: COUGH
  6. ZOPICLON [Concomitant]
     Indication: SLEEP DISORDER

REACTIONS (1)
  - CEREBRAL INFARCTION [None]
